FAERS Safety Report 10244202 (Version 1)
Quarter: 2014Q2

REPORT INFORMATION
  Report Type: Spontaneous
  Country: US (occurrence: None)
  Receive Date: 20140616
  Receipt Date: 20140616
  Transmission Date: 20141212
  Serious: Yes (Hospitalization)
  Sender: FDA-Public Use
  Company Number: None

PATIENT
  Age: 77 Year
  Sex: Female

DRUGS (11)
  1. RIBASPHERE [Suspect]
     Indication: HEPATITIS C
     Dosage: 400 MG QAM AND 400 MG AND QPM
     Route: 048
     Dates: start: 20140522, end: 20140605
  2. TOPROL XL [Concomitant]
  3. NEURONTIN [Concomitant]
  4. XANAX [Concomitant]
  5. HYDROXYCHLOROQUINE [Concomitant]
  6. SPIRONOLACTONE [Concomitant]
  7. ENTOCORT [Concomitant]
  8. CELLCEPT [Concomitant]
  9. ASPIRIN [Concomitant]
  10. CENTRUM SILVER [Concomitant]
  11. CALCIUM [Concomitant]

REACTIONS (1)
  - Platelet count decreased [None]
